FAERS Safety Report 20647479 (Version 2)
Quarter: 2022Q1

REPORT INFORMATION
  Report Type: Report from Study
  Country: CN (occurrence: None)
  Receive Date: 20220329
  Receipt Date: 20220330
  Transmission Date: 20220423
  Serious: Yes (Hospitalization)
  Sender: FDA-Public Use
  Company Number: CN-ROCHE-2895881

PATIENT
  Age: 63 Year
  Sex: Male
  Weight: 80 kg

DRUGS (29)
  1. ATEZOLIZUMAB [Suspect]
     Active Substance: ATEZOLIZUMAB
     Indication: Small cell lung cancer extensive stage
     Route: 041
     Dates: start: 20210806
  2. BEVACIZUMAB [Suspect]
     Active Substance: BEVACIZUMAB
     Indication: Small cell lung cancer extensive stage
     Dosage: DATE OF MOST RECENT DOSE OF BLINDED BEVACIZUMAB PRIOR TO AE/SAE ONSET: 06/AUG/2021
     Route: 042
     Dates: start: 20210806
  3. CARBOPLATIN [Suspect]
     Active Substance: CARBOPLATIN
     Indication: Small cell lung cancer extensive stage
     Dosage: DATE OF MOST RECENT DOSE OF CARBOPLATIN  PRIOR TO AE/SAE ONSET: 06/AUG/2021 (589 MG)
     Route: 042
     Dates: start: 20210806
  4. ETOPOSIDE [Suspect]
     Active Substance: ETOPOSIDE
     Indication: Small cell lung cancer extensive stage
     Dosage: DATE OF MOST RECENT DOSE OF CARBOPLATIN  PRIOR TO AE/SAE ONSET: 06/AUG/2021 (189 MG)
     Route: 042
     Dates: start: 20210806
  5. ETHAMSYLATE [Concomitant]
     Active Substance: ETHAMSYLATE
     Indication: Haemoptysis
     Route: 042
     Dates: start: 20210809, end: 20210810
  6. ETHAMSYLATE [Concomitant]
     Active Substance: ETHAMSYLATE
     Dosage: TO PREVENT BLEEDING
     Route: 042
     Dates: start: 20210811, end: 20210811
  7. HERBALS [Concomitant]
     Active Substance: HERBALS
     Indication: Cough
     Route: 048
     Dates: start: 20210726, end: 20210731
  8. HERBALS [Concomitant]
     Active Substance: HERBALS
     Indication: Productive cough
  9. KE KE JIAO NANG [Concomitant]
     Indication: Cough
     Route: 048
     Dates: start: 20210726, end: 20210731
  10. KE KE JIAO NANG [Concomitant]
     Indication: Productive cough
  11. COMPOUND LIQUORICE [Concomitant]
     Indication: Cough
     Route: 048
     Dates: start: 20210801, end: 20210811
  12. COMPOUND LIQUORICE [Concomitant]
     Indication: Productive cough
  13. ONDANSETRON HYDROCHLORIDE [Concomitant]
     Active Substance: ONDANSETRON HYDROCHLORIDE
     Route: 042
     Dates: start: 20210806, end: 20210808
  14. ONDANSETRON HYDROCHLORIDE [Concomitant]
     Active Substance: ONDANSETRON HYDROCHLORIDE
     Route: 042
     Dates: start: 20210806, end: 20210809
  15. ONDANSETRON HYDROCHLORIDE [Concomitant]
     Active Substance: ONDANSETRON HYDROCHLORIDE
     Route: 042
     Dates: start: 20210902, end: 20210904
  16. PHENTOLAMINE MESYLATE [Concomitant]
     Active Substance: PHENTOLAMINE MESYLATE
     Indication: Haemoptysis
     Route: 042
     Dates: start: 20210809, end: 20210810
  17. BATILOL [Concomitant]
     Active Substance: BATILOL
     Route: 048
     Dates: start: 20210811, end: 20210813
  18. BATILOL [Concomitant]
     Active Substance: BATILOL
     Route: 048
     Dates: start: 20210822
  19. BATILOL [Concomitant]
     Active Substance: BATILOL
     Route: 048
     Dates: end: 20210921
  20. OMEPRAZOLE [Concomitant]
     Active Substance: OMEPRAZOLE
     Route: 048
     Dates: start: 20210811, end: 20211230
  21. CARBAZOCHROME [Concomitant]
     Active Substance: CARBAZOCHROME
     Route: 048
     Dates: start: 20210811, end: 20210828
  22. LEUCOGEN TABLETS [Concomitant]
     Route: 048
     Dates: start: 20210811, end: 20210813
  23. LEUCOGEN TABLETS [Concomitant]
     Dates: end: 20210827
  24. LEUCOGEN TABLETS [Concomitant]
     Route: 048
     Dates: start: 20210828, end: 20210921
  25. MUCOPOLYSACCHARIDE POLYSULFATE [Concomitant]
     Route: 050
     Dates: start: 20210902, end: 20210902
  26. FERRIC POLYSACCHARIDE COMPLEX [Concomitant]
     Active Substance: FERRIC POLYSACCHARIDE COMPLEX
     Indication: Anaemia
     Route: 048
     Dates: start: 20210824, end: 20210827
  27. THROMBOPOIETIN [Concomitant]
     Active Substance: THROMBOPOIETIN
     Dates: start: 20210827
  28. IBUPROFEN [Concomitant]
     Active Substance: IBUPROFEN
     Indication: Pyrexia
     Route: 048
     Dates: start: 20210807, end: 20210807
  29. GRANULOCYTE COLONY-STIMULATING FACTOR NOS [Concomitant]
     Active Substance: GRANULOCYTE COLONY-STIMULATING FACTOR NOS
     Indication: Neutrophil count decreased
     Route: 042
     Dates: start: 20211013, end: 20211013

REACTIONS (2)
  - Platelet count decreased [Recovered/Resolved]
  - Neutrophil count decreased [Recovered/Resolved]

NARRATIVE: CASE EVENT DATE: 20210814
